FAERS Safety Report 13612440 (Version 3)
Quarter: 2019Q4

REPORT INFORMATION
  Report Type: Spontaneous
  Country: US (occurrence: US)
  Receive Date: 20170605
  Receipt Date: 20191202
  Transmission Date: 20200122
  Serious: Yes (Other)
  Sender: FDA-Public Use
  Company Number: US-PFIZER INC-2017245161

PATIENT
  Age: 67 Year
  Sex: Male

DRUGS (6)
  1. VIAGRA [Suspect]
     Active Substance: SILDENAFIL CITRATE
     Dosage: 100 MG, MONTHLY (ONCE A MOTH)
     Route: 048
     Dates: end: 20060606
  2. ASPIRIN. [Concomitant]
     Active Substance: ASPIRIN
     Indication: ANTICOAGULANT THERAPY
     Dosage: UNK
     Dates: start: 2004
  3. VIAGRA [Suspect]
     Active Substance: SILDENAFIL CITRATE
     Indication: ERECTILE DYSFUNCTION
     Dosage: 25 MG, MONTHLY (ONCE A MOTH)
     Route: 048
     Dates: start: 20000618, end: 20060606
  4. CIALIS [Suspect]
     Active Substance: TADALAFIL
     Dosage: 20 MG, ONCE A MONTH
     Route: 048
     Dates: start: 20060531, end: 20141001
  5. COQ10 [Concomitant]
     Active Substance: UBIDECARENONE
     Indication: CARDIOVASCULAR EVENT PROPHYLAXIS
     Dosage: UNK
     Dates: start: 2004
  6. CIALIS [Suspect]
     Active Substance: TADALAFIL
     Indication: ERECTILE DYSFUNCTION
     Dosage: 20 MG, ONCE A MONTH
     Route: 048
     Dates: start: 20060501, end: 20141001

REACTIONS (1)
  - Malignant melanoma in situ [Unknown]

NARRATIVE: CASE EVENT DATE: 20070115
